FAERS Safety Report 4811020-7 (Version None)
Quarter: 2005Q4

REPORT INFORMATION
  Report Type: 
  Country: None (occurrence: None)
  Receive Date: 20051027
  Receipt Date: 20051017
  Transmission Date: 20060501
  Serious: Yes (Other)
  Sender: FDA-Public Use
  Company Number: SE-JNJFOC-20050500024

PATIENT
  Age: 26 Year
  Sex: Male

DRUGS (3)
  1. CONCERTA [Suspect]
     Route: 048
     Dates: start: 20040705, end: 20050401
  2. CONCERTA [Suspect]
     Route: 048
     Dates: start: 20040705, end: 20050401
  3. CONCERTA [Suspect]
     Indication: ANTISOCIAL PERSONALITY DISORDER
     Route: 048
     Dates: start: 20040705, end: 20050401

REACTIONS (3)
  - ANXIETY [None]
  - DEPRESSION [None]
  - TACHYCARDIA [None]
